FAERS Safety Report 7163180-3 (Version None)
Quarter: 2010Q4

REPORT INFORMATION
  Report Type: 
  Country: None (occurrence: None)
  Receive Date: 20101215
  Receipt Date: 20100308
  Transmission Date: 20110411
  Serious: Yes (Other)
  Sender: FDA-Public Use
  Company Number: US-PFIZER INC-2010003125

PATIENT
  Sex: Female
  Weight: 63.492 kg

DRUGS (16)
  1. LYRICA [Suspect]
     Indication: NEUROPATHY PERIPHERAL
     Dosage: 50 MG, 1X/DAY
     Dates: start: 20050101, end: 20090101
  2. LYRICA [Suspect]
     Indication: DIABETIC NEUROPATHY
  3. NEURONTIN [Suspect]
     Indication: ARTHRITIS
     Dosage: UNK
  4. ALPHAGAN [Suspect]
     Indication: GLAUCOMA
     Dosage: UNK
  5. AZOPT [Concomitant]
     Dosage: UNK
  6. XALATAN [Concomitant]
     Dosage: UNK
  7. ALPRAZOLAM [Concomitant]
     Dosage: 25 MG, 1X/DAY
  8. CLONIDINE [Concomitant]
     Dosage: 0.3 MG/24HR, TWICE DAILY
  9. HYZAAR [Concomitant]
     Dosage: 100/25 DAILY
  10. CHONDROITIN/GLUCOSAMINE [Concomitant]
     Dosage: 500 MG, 2X/DAY
  11. CYMBALTA [Concomitant]
     Dosage: 60 MG, 1X/DAY
  12. PROPRANOLOL [Concomitant]
     Dosage: 80 MG, 2X/DAY
  13. HYDROCHLOROTHIAZIDE [Concomitant]
     Dosage: 25 MG, 1X/DAY
  14. HUMALOG [Concomitant]
     Dosage: UNK
  15. LANTUS [Concomitant]
     Dosage: 36 IU, 1X/DAY
  16. DARVOCET [Concomitant]
     Dosage: UNK

REACTIONS (11)
  - ANGIOPATHY [None]
  - DEPRESSION [None]
  - DYSKINESIA [None]
  - GLYCOSYLATED HAEMOGLOBIN INCREASED [None]
  - INSOMNIA [None]
  - NEURALGIA [None]
  - NIGHTMARE [None]
  - SOMNOLENCE [None]
  - VISION BLURRED [None]
  - VOMITING [None]
  - WITHDRAWAL SYNDROME [None]
